FAERS Safety Report 9179619 (Version 1)
Quarter: 2012Q4

REPORT INFORMATION
  Report Type: Report from Study
  Country: US (occurrence: US)
  Receive Date: 20121029
  Receipt Date: 20121029
  Transmission Date: 20130627
  Serious: Yes (Hospitalization)
  Sender: FDA-Public Use
  Company Number: US-GLAXOSMITHKLINE-A0998874A

PATIENT
  Age: 74 Year
  Sex: Male
  Weight: 109.1 kg

DRUGS (11)
  1. PAZOPANIB [Suspect]
     Indication: NON-SMALL CELL LUNG CANCER
     Dosage: 800MG Twice per day
     Route: 048
     Dates: start: 20121015
  2. ASPIRIN [Concomitant]
     Dosage: 325MG Per day
     Route: 048
  3. ATORVASTATIN [Concomitant]
     Dosage: 40MG Per day
     Route: 048
  4. BEVACIZUMAB [Concomitant]
     Dosage: 5MGK Every 3 weeks
     Route: 042
  5. DEXAMETHASONE [Concomitant]
     Route: 048
  6. FOLIC ACID [Concomitant]
     Dosage: 1MG Per day
     Route: 048
  7. MECLIZINE [Concomitant]
     Dosage: 12.5MG As required
     Route: 048
  8. MIDODRINE [Concomitant]
     Dosage: 10MG Three times per day
     Route: 048
  9. MULTIVITAMIN [Concomitant]
     Dosage: 1TAB Per day
     Route: 048
  10. PEGFILGRASTIM [Concomitant]
     Dosage: 6MG Every 3 weeks
     Route: 058
  11. PEMETREXED [Concomitant]
     Dosage: 500MGM2 Every 3 weeks
     Route: 042

REACTIONS (1)
  - Mental status changes [Unknown]
